FAERS Safety Report 5704654-9 (Version None)
Quarter: 2008Q2

REPORT INFORMATION
  Report Type: 
  Country: None (occurrence: None)
  Receive Date: 20080414
  Receipt Date: 20080401
  Transmission Date: 20081010
  Serious: Yes (Other)
  Sender: FDA-Public Use
  Company Number: US-SANOFI-SYNTHELABO-A03200801320

PATIENT
  Age: 50 Year
  Sex: Male

DRUGS (3)
  1. ALCOHOL [Interacting]
     Indication: DRUG USE FOR UNKNOWN INDICATION
     Route: 048
  2. AMBIEN [Suspect]
     Indication: INSOMNIA
     Route: 048
  3. AMBIEN [Interacting]
     Route: 048

REACTIONS (4)
  - AMNESIA [None]
  - DRUG ABUSE [None]
  - IMPAIRED DRIVING ABILITY [None]
  - ROAD TRAFFIC ACCIDENT [None]
